FAERS Safety Report 12325041 (Version 1)
Quarter: 2016Q2

REPORT INFORMATION
  Report Type: Spontaneous
  Country: AU (occurrence: AU)
  Receive Date: 20160502
  Receipt Date: 20160502
  Transmission Date: 20160815
  Serious: Yes (Hospitalization, Other)
  Sender: FDA-Public Use
  Company Number: AU-ROCHE-1746772

PATIENT
  Age: 57 Year
  Sex: Female

DRUGS (4)
  1. TRASTUZUMAB EMTANSINE [Suspect]
     Active Substance: ADO-TRASTUZUMAB EMTANSINE
     Indication: PRODUCT USED FOR UNKNOWN INDICATION
     Route: 065
     Dates: start: 201508
  2. TRASTUZUMAB EMTANSINE [Suspect]
     Active Substance: ADO-TRASTUZUMAB EMTANSINE
     Route: 065
  3. TRASTUZUMAB [Suspect]
     Active Substance: TRASTUZUMAB
     Indication: PRODUCT USED FOR UNKNOWN INDICATION
     Route: 065
  4. DOCETAXEL. [Suspect]
     Active Substance: DOCETAXEL
     Indication: PRODUCT USED FOR UNKNOWN INDICATION
     Route: 065

REACTIONS (11)
  - Toxicity to various agents [Unknown]
  - Lymphadenopathy [Unknown]
  - Breast cancer recurrent [Unknown]
  - Pneumonia [Recovering/Resolving]
  - Disease progression [Recovered/Resolved]
  - Rash [Unknown]
  - Pyrexia [Recovering/Resolving]
  - Metastases to lung [Unknown]
  - Dyspnoea [Recovering/Resolving]
  - Thrombocytopenia [Not Recovered/Not Resolved]
  - Mental disorder [Recovered/Resolved]
